FAERS Safety Report 9148548 (Version 1)
Quarter: 2013Q1

REPORT INFORMATION
  Report Type: Spontaneous
  Country: US (occurrence: US)
  Receive Date: 20130308
  Receipt Date: 20130308
  Transmission Date: 20140127
  Serious: Yes (Other)
  Sender: FDA-Public Use
  Company Number: US-SANOFI-AVENTIS-2013SA021803

PATIENT
  Age: 64 Year
  Sex: Female
  Weight: 101.15 kg

DRUGS (10)
  1. PLAVIX [Suspect]
     Dates: end: 201212
  2. LEVOTHYROXINE [Concomitant]
     Dosage: EVERY DAY BEFORE NOON
  3. VENTOLINE [Concomitant]
     Dosage: 3-4 TIMES PER DAY DOSE:2 PUFF(S)
  4. MONTELUKAST SODIUM [Concomitant]
  5. ALPRAZOLAM [Concomitant]
  6. NEXIUM [Concomitant]
     Dosage: TAKES VERY RARELY
  7. LORATADINE [Concomitant]
     Indication: SNEEZING
  8. LORATADINE [Concomitant]
     Indication: RESPIRATORY DISORDER
  9. LIPITOR [Concomitant]
  10. LOSARTAN [Concomitant]
     Dates: end: 201212

REACTIONS (7)
  - Fracture [Unknown]
  - Thyroid disorder [Unknown]
  - Cerebrovascular accident [Unknown]
  - Tooth disorder [Unknown]
  - Complex regional pain syndrome [Recovering/Resolving]
  - Hypoaesthesia [Recovering/Resolving]
  - Ocular vascular disorder [Unknown]
